FAERS Safety Report 12286546 (Version 1)
Quarter: 2016Q2

REPORT INFORMATION
  Report Type: Spontaneous
  Country: US (occurrence: US)
  Receive Date: 20160420
  Receipt Date: 20160420
  Transmission Date: 20160815
  Serious: Yes (Other)
  Sender: FDA-Public Use
  Company Number: US-BAXTER-2016BAX019144

PATIENT
  Age: 50 Year
  Sex: Male

DRUGS (1)
  1. DOBUTAMINE HYDROCHLORIDE IN DEXTROSE [Suspect]
     Active Substance: DEXTROSE MONOHYDRATE\DEXTROSE MONOHYDRATE\DOBUTAMINE HYDROCHLORIDE\DOBUTAMINE HYDROCHLORIDE
     Indication: EJECTION FRACTION ABNORMAL
     Dosage: FROM 5-40 MICROGRAM/KG/MIN
     Route: 042

REACTIONS (1)
  - Left ventricle outflow tract obstruction [Recovering/Resolving]
